FAERS Safety Report 20581478 (Version 1)
Quarter: 2022Q1

REPORT INFORMATION
  Report Type: Spontaneous
  Country: US (occurrence: US)
  Receive Date: 20220311
  Receipt Date: 20220311
  Transmission Date: 20220424
  Serious: No
  Sender: FDA-Public Use
  Company Number: US-ELI_LILLY_AND_COMPANY-US202203004317

PATIENT
  Sex: Female

DRUGS (4)
  1. VERZENIO [Suspect]
     Active Substance: ABEMACICLIB
     Indication: Breast cancer female
     Dosage: 100 MG, UNKNOWN
     Route: 048
  2. VERZENIO [Suspect]
     Active Substance: ABEMACICLIB
     Indication: Lymphoma
  3. VERZENIO [Suspect]
     Active Substance: ABEMACICLIB
     Indication: Metastases to liver
  4. VERZENIO [Suspect]
     Active Substance: ABEMACICLIB
     Indication: Cholangiocarcinoma

REACTIONS (1)
  - Therapeutic product effect decreased [Unknown]
